FAERS Safety Report 4810854-2 (Version None)
Quarter: 2005Q4

REPORT INFORMATION
  Report Type: 
  Country: None (occurrence: None)
  Receive Date: 20051025
  Receipt Date: 20051011
  Transmission Date: 20060501
  Serious: Yes (Hospitalization)
  Sender: FDA-Public Use
  Company Number: US-2005-017983

PATIENT
  Age: 87 Year
  Sex: Male

DRUGS (24)
  1. LEUKINE [Suspect]
     Indication: HAEMATOPOIETIC STEM CELL MOBILISATION
     Dosage: 100 UG/DAY; 100 UG/DAY; 100 UG/DAY; 100 UG/DAY; 50 UG/DAY, 1 DOSE; 50 UG/DAY; 100 UG/DAY
     Dates: start: 20011219, end: 20011222
  2. LEUKINE [Suspect]
     Indication: HAEMATOPOIETIC STEM CELL MOBILISATION
     Dosage: 100 UG/DAY; 100 UG/DAY; 100 UG/DAY; 100 UG/DAY; 50 UG/DAY, 1 DOSE; 50 UG/DAY; 100 UG/DAY
     Dates: start: 20020115, end: 20020118
  3. LEUKINE [Suspect]
     Indication: HAEMATOPOIETIC STEM CELL MOBILISATION
     Dosage: 100 UG/DAY; 100 UG/DAY; 100 UG/DAY; 100 UG/DAY; 50 UG/DAY, 1 DOSE; 50 UG/DAY; 100 UG/DAY
     Dates: start: 20020212, end: 20020214
  4. LEUKINE [Suspect]
     Indication: HAEMATOPOIETIC STEM CELL MOBILISATION
     Dosage: 100 UG/DAY; 100 UG/DAY; 100 UG/DAY; 100 UG/DAY; 50 UG/DAY, 1 DOSE; 50 UG/DAY; 100 UG/DAY
     Dates: start: 20020312, end: 20020313
  5. LEUKINE [Suspect]
     Indication: HAEMATOPOIETIC STEM CELL MOBILISATION
     Dosage: 100 UG/DAY; 100 UG/DAY; 100 UG/DAY; 100 UG/DAY; 50 UG/DAY, 1 DOSE; 50 UG/DAY; 100 UG/DAY
     Dates: start: 20020409, end: 20020409
  6. LEUKINE [Suspect]
     Indication: HAEMATOPOIETIC STEM CELL MOBILISATION
     Dosage: 100 UG/DAY; 100 UG/DAY; 100 UG/DAY; 100 UG/DAY; 50 UG/DAY, 1 DOSE; 50 UG/DAY; 100 UG/DAY
     Dates: start: 20020827, end: 20020830
  7. LEUKINE [Suspect]
     Indication: HAEMATOPOIETIC STEM CELL MOBILISATION
     Dosage: 100 UG/DAY; 100 UG/DAY; 100 UG/DAY; 100 UG/DAY; 50 UG/DAY, 1 DOSE; 50 UG/DAY; 100 UG/DAY
     Dates: start: 20021002, end: 20021005
  8. INTERLEUKIN-2 (INTERLEUKIN-2) [Suspect]
     Indication: PROSTATE CANCER
     Dosage: 6 MIU/M2, 1X/DAY
     Dates: start: 20011226, end: 20011228
  9. VACCINES [Suspect]
     Indication: PROSTATE CANCER
     Dosage: 1 DOSE; 1 DOSE; 1 DOSE
     Dates: start: 20020117, end: 20020117
  10. VACCINES [Suspect]
     Indication: PROSTATE CANCER
     Dosage: 1 DOSE; 1 DOSE; 1 DOSE
     Dates: start: 20020213, end: 20020213
  11. VACCINES [Suspect]
     Indication: PROSTATE CANCER
     Dosage: 1 DOSE; 1 DOSE; 1 DOSE
     Dates: start: 20020117
  12. NITROGLYCERIN [Concomitant]
  13. GLUCOTROL [Concomitant]
  14. TOPROL-XL [Concomitant]
  15. DIOVAN NOVARTIS (VALSARTAN) [Concomitant]
  16. HYDROCHLOROTHIAZIDE [Concomitant]
  17. LOTREL [Concomitant]
  18. PRILOSEC [Concomitant]
  19. PERI-COLACE [Concomitant]
  20. ASPIRIN [Suspect]
  21. TIMOPTIC [Concomitant]
  22. LUPRON [Concomitant]
  23. FLOMAX [Suspect]
  24. ZOCOR [Concomitant]

REACTIONS (7)
  - ANAEMIA [None]
  - COLON ADENOMA [None]
  - DISEASE PROGRESSION [None]
  - GASTRIC POLYPS [None]
  - HAEMATURIA [None]
  - MYOCARDIAL ISCHAEMIA [None]
  - PYREXIA [None]
